FAERS Safety Report 22522628 (Version 1)
Quarter: 2023Q2

REPORT INFORMATION
  Report Type: Report from Study
  Country: CA (occurrence: CA)
  Receive Date: 20230605
  Receipt Date: 20230605
  Transmission Date: 20230721
  Serious: Yes (Hospitalization)
  Sender: FDA-Public Use
  Company Number: CA-002147023-NVSC2023CA124937

PATIENT
  Sex: Male

DRUGS (1)
  1. MAYZENT [Suspect]
     Active Substance: SIPONIMOD
     Indication: Secondary progressive multiple sclerosis
     Dosage: UNK
     Route: 048
     Dates: start: 20230510

REACTIONS (4)
  - Upper respiratory tract infection [Recovering/Resolving]
  - Blood pressure increased [Unknown]
  - Dyspnoea [Recovered/Resolved]
  - Secretion discharge [Unknown]
